FAERS Safety Report 5701848-3 (Version None)
Quarter: 2008Q2

REPORT INFORMATION
  Report Type: 
  Country: None (occurrence: None)
  Receive Date: 20080408
  Receipt Date: 20080327
  Transmission Date: 20081010
  Serious: Yes (Death, Hospitalization)
  Sender: FDA-Public Use
  Company Number: 044-C5013-07080964

PATIENT
  Age: 74 Year
  Sex: Male
  Weight: 84 kg

DRUGS (8)
  1. CC-5013 (LENALIDOMIDE) (CAPSULES) [Suspect]
     Indication: MULTIPLE MYELOMA
     Dosage: 25 MG, DAILY; ORAL
     Route: 048
     Dates: start: 20070803, end: 20070816
  2. DEXAMETHASONE TAB [Concomitant]
  3. ZOLEDRONIC ACID [Concomitant]
  4. GABAPENTIN [Concomitant]
  5. ACETYLSALICYLIC ACID SRT [Concomitant]
  6. ZOLPIDEM [Concomitant]
  7. ACETAMINOPHEN [Concomitant]
  8. TRAMADOL HCL [Concomitant]

REACTIONS (10)
  - ANAEMIA [None]
  - AZOTAEMIA [None]
  - DEPRESSION [None]
  - DISEASE PROGRESSION [None]
  - GENERAL PHYSICAL HEALTH DETERIORATION [None]
  - HYPERCALCAEMIA [None]
  - NEUTROPENIA [None]
  - PERIANAL ABSCESS [None]
  - RENAL FAILURE [None]
  - TREATMENT NONCOMPLIANCE [None]
